FAERS Safety Report 18522165 (Version 1)
Quarter: 2020Q4

REPORT INFORMATION
  Report Type: Report from Study
  Country: US (occurrence: US)
  Receive Date: 20201119
  Receipt Date: 20201119
  Transmission Date: 20210114
  Serious: Yes (Death, Other)
  Sender: FDA-Public Use
  Company Number: US-BAYER-2020-246591

PATIENT
  Age: 13 Year
  Sex: Male

DRUGS (2)
  1. CLOPIDOGREL [Suspect]
     Active Substance: CLOPIDOGREL BISULFATE
     Dosage: 300 MG
  2. ASPIRIN. [Suspect]
     Active Substance: ASPIRIN
     Dosage: 650 MG

REACTIONS (5)
  - Subarachnoid haemorrhage [Fatal]
  - Brain stem haemorrhage [Fatal]
  - Renal haematoma [Fatal]
  - Labelled drug-drug interaction medication error [None]
  - Product administered to patient of inappropriate age [None]
